FAERS Safety Report 7916206-0 (Version None)
Quarter: 2011Q4

REPORT INFORMATION
  Report Type: 
  Country: None (occurrence: None)
  Receive Date: 20111116
  Receipt Date: 20111109
  Transmission Date: 20120403
  Serious: No
  Sender: FDA-Public Use
  Company Number: US-BIOGENIDEC-2011BI019921

PATIENT
  Age: 40 Year
  Sex: Female

DRUGS (3)
  1. TYSABRI [Suspect]
     Indication: MULTIPLE SCLEROSIS
     Route: 042
     Dates: start: 20110509
  2. TYSABRI [Suspect]
     Route: 042
     Dates: start: 20080926, end: 20080926
  3. TYSABRI [Suspect]
     Route: 042
     Dates: start: 20090528, end: 20091001

REACTIONS (9)
  - TEMPERATURE INTOLERANCE [None]
  - DYSPNOEA [None]
  - FALL [None]
  - FATIGUE [None]
  - ABASIA [None]
  - RIB FRACTURE [None]
  - SYNCOPE [None]
  - MULTIPLE SCLEROSIS RELAPSE [None]
  - PAIN IN EXTREMITY [None]
